FAERS Safety Report 8480436-2 (Version None)
Quarter: 2012Q3

REPORT INFORMATION
  Report Type: 
  Country: None (occurrence: None)
  Receive Date: 20120702
  Receipt Date: 20120622
  Transmission Date: 20120928
  Serious: Yes (Hospitalization)
  Sender: FDA-Public Use
  Company Number: US-BIOGENIDEC-2012BI015626

PATIENT
  Age: 54 Year
  Sex: Female

DRUGS (9)
  1. ZANAFLEX [Concomitant]
  2. VALIUM [Concomitant]
  3. MS CONTIN [Concomitant]
     Route: 048
  4. LISINOPRIL [Concomitant]
     Indication: RENAL FAILURE
  5. PROZAC [Concomitant]
     Route: 048
  6. TYSABRI [Suspect]
     Indication: MULTIPLE SCLEROSIS
     Route: 042
     Dates: start: 20091112
  7. FENOFIBRATE [Concomitant]
  8. SYNTHROID [Concomitant]
  9. PERCOCET [Concomitant]

REACTIONS (2)
  - RENAL FAILURE ACUTE [None]
  - IMPAIRED GASTRIC EMPTYING [None]
